FAERS Safety Report 9148265 (Version 1)
Quarter: 2013Q1

REPORT INFORMATION
  Report Type: Spontaneous
  Country: US (occurrence: None)
  Receive Date: 20130228
  Receipt Date: 20130228
  Transmission Date: 20140127
  Serious: Yes (Other)
  Sender: FDA-Public Use
  Company Number: None

PATIENT
  Age: 82 Year
  Sex: Male

DRUGS (1)
  1. ULORIC [Suspect]
     Indication: GOUT
     Dosage: STARTED 1/2 TAB EVERY OTHER DAY (ORAL) AND INCREASED GRADUALLY TO 1 TABLET DAILY!
     Route: 048
     Dates: start: 20120809, end: 20121031

REACTIONS (4)
  - Pain in extremity [None]
  - Skin discolouration [None]
  - Local swelling [None]
  - No therapeutic response [None]
